FAERS Safety Report 23320892 (Version 3)
Quarter: 2024Q1

REPORT INFORMATION
  Report Type: Spontaneous
  Country: US (occurrence: US)
  Receive Date: 20231220
  Receipt Date: 20240313
  Transmission Date: 20240410
  Serious: No
  Sender: FDA-Public Use
  Company Number: US-PFIZER INC-202300434960

PATIENT
  Age: 17 Year
  Sex: Male

DRUGS (1)
  1. GENOTROPIN [Suspect]
     Active Substance: SOMATROPIN
     Dosage: 2.8 MG PER DAY ORALLY
     Route: 048

REACTIONS (3)
  - Device mechanical issue [Unknown]
  - Device malfunction [Unknown]
  - Incorrect route of product administration [Unknown]
